FAERS Safety Report 6315282-9 (Version None)
Quarter: 2009Q3

REPORT INFORMATION
  Report Type: 
  Country: None (occurrence: None)
  Receive Date: 20090819
  Receipt Date: 20090807
  Transmission Date: 20100115
  Serious: Yes (Other)
  Sender: FDA-Public Use
  Company Number: JP-PFIZER INC-2009231833

PATIENT
  Age: 71 Year

DRUGS (2)
  1. NORVASC [Suspect]
     Indication: HYPERTENSION
     Dosage: 5 MG, 1X/DAY
     Route: 048
     Dates: start: 20081203, end: 20090427
  2. NORVASC [Suspect]
     Dosage: 2.5 MG, 1X/DAY
     Dates: start: 20000526, end: 20090621

REACTIONS (1)
  - GASTRIC ULCER [None]
